FAERS Safety Report 10306158 (Version 1)
Quarter: 2014Q3

REPORT INFORMATION
  Report Type: Spontaneous
  Country: CA (occurrence: CA)
  Receive Date: 20140715
  Receipt Date: 20140715
  Transmission Date: 20150326
  Serious: Yes (Other)
  Sender: FDA-Public Use
  Company Number: CHPA2014CA009334

PATIENT
  Age: 64 Year
  Sex: Female

DRUGS (7)
  1. BENEFIBER [Suspect]
     Active Substance: STARCH, WHEAT
     Indication: BLOOD CHOLESTEROL
     Dosage: 3 TSP TO 2 TBSP ONCE DAILY
     Route: 048
  2. DETROL [Concomitant]
     Active Substance: TOLTERODINE TARTRATE
     Indication: BLADDER DISORDER
  3. BENEFIBER W/ INULIN [Suspect]
     Active Substance: INULIN
     Indication: BLOOD CHOLESTEROL
     Dosage: 3 TSP TO 2 TBSP ONCE DAILY
     Route: 048
  4. BENEFIBER [Suspect]
     Active Substance: STARCH, WHEAT
     Indication: OFF LABEL USE
     Dosage: 3 TSP TO 2 TBSP ONCE DAILY
  5. BENEFIBER W/ INULIN [Suspect]
     Active Substance: INULIN
     Indication: OFF LABEL USE
  6. BENEFIBER W/ INULIN [Suspect]
     Active Substance: INULIN
     Indication: NUTRITIONAL SUPPLEMENTATION
  7. ESTROGEN [Concomitant]
     Active Substance: ESTRONE\SUS SCROFA OVARY

REACTIONS (3)
  - Incorrect dose administered [Unknown]
  - Inappropriate schedule of drug administration [Unknown]
  - Arthritis [Not Recovered/Not Resolved]
